FAERS Safety Report 7935117-8 (Version None)
Quarter: 2011Q4

REPORT INFORMATION
  Report Type: 
  Country: None (occurrence: None)
  Receive Date: 20111122
  Receipt Date: 20111115
  Transmission Date: 20120403
  Serious: Yes (Other)
  Sender: FDA-Public Use
  Company Number: PHEH2011US00493

PATIENT
  Sex: Male

DRUGS (10)
  1. CASODEX [Concomitant]
     Dosage: UNK
     Dates: end: 20090701
  2. DARVOCET-N 50 [Concomitant]
  3. LUPRON [Concomitant]
  4. ANTIBIOTICS [Concomitant]
  5. PERIDEX [Concomitant]
  6. METFORMIN HCL [Concomitant]
  7. ZOMETA [Suspect]
     Indication: METASTASES TO BONE
  8. ACTOS [Concomitant]
  9. NEXIUM [Concomitant]
  10. SIMVASTATIN [Concomitant]

REACTIONS (17)
  - PAIN IN JAW [None]
  - HYPERCHOLESTEROLAEMIA [None]
  - TOOTH ABSCESS [None]
  - PAIN [None]
  - OSTEONECROSIS OF JAW [None]
  - DIARRHOEA [None]
  - TENDERNESS [None]
  - DIABETES MELLITUS [None]
  - SWELLING [None]
  - DEFORMITY [None]
  - GASTROOESOPHAGEAL REFLUX DISEASE [None]
  - EYELID OEDEMA [None]
  - EMOTIONAL DISTRESS [None]
  - NASOPHARYNGITIS [None]
  - PROSTATE CANCER METASTATIC [None]
  - PROCTALGIA [None]
  - ERYTHEMA OF EYELID [None]
